FAERS Safety Report 7479634-6 (Version None)
Quarter: 2011Q2

REPORT INFORMATION
  Report Type: 
  Country: None (occurrence: None)
  Receive Date: 20110513
  Receipt Date: 20110328
  Transmission Date: 20111010
  Serious: Yes (Hospitalization)
  Sender: FDA-Public Use
  Company Number: PHHY2009JP40019

PATIENT
  Sex: Male

DRUGS (14)
  1. THYRADIN [Concomitant]
     Dosage: 50 UG, UNK
     Route: 048
  2. GASTER D [Concomitant]
     Indication: PROPHYLAXIS
     Dosage: 40 MG, UNK
     Route: 048
     Dates: start: 20090508
  3. BAKTAR [Concomitant]
     Indication: PROPHYLAXIS
     Dosage: 0.5 DF, UNK
     Route: 048
     Dates: start: 20090508
  4. TASIGNA [Suspect]
     Dosage: 800 MG, DAILY
     Route: 048
     Dates: start: 20090623, end: 20090708
  5. TASIGNA [Suspect]
     Indication: CHRONIC MYELOID LEUKAEMIA
     Dosage: 400 MG, DAILY
     Route: 048
     Dates: start: 20090508, end: 20090621
  6. ADONA [Concomitant]
     Route: 048
     Dates: start: 20090722
  7. TASIGNA [Suspect]
     Dosage: 1200 MG, DAILY
     Route: 048
     Dates: start: 20090622, end: 20090622
  8. TASIGNA [Suspect]
     Dosage: 600 MG, DAILY
     Route: 048
     Dates: start: 20090713
  9. LIDOCAINE [Concomitant]
     Dates: start: 20090706, end: 20090706
  10. TASIGNA [Suspect]
     Dosage: 400 MG, DAILY
     Route: 048
     Dates: start: 20090801, end: 20090902
  11. LENDORMIN [Concomitant]
     Dosage: 0.5 MG, UNK
     Route: 048
     Dates: start: 20090615
  12. MAGMITT [Concomitant]
     Route: 048
     Dates: start: 20090709
  13. FLOMAX [Concomitant]
     Dosage: 300 MG, BID
     Route: 048
     Dates: start: 20090805
  14. PURSENNID [Concomitant]
     Dosage: 24 MG, UNK
     Route: 048
     Dates: start: 20090623, end: 20090719

REACTIONS (4)
  - ANAEMIA [None]
  - PLATELET COUNT DECREASED [None]
  - LIVER DISORDER [None]
  - FEBRILE NEUTROPENIA [None]
